FAERS Safety Report 6064326-0 (Version None)
Quarter: 2009Q1

REPORT INFORMATION
  Report Type: 
  Country: None (occurrence: None)
  Receive Date: 20090203
  Receipt Date: 20090203
  Transmission Date: 20090719
  Serious: Yes (Death, Other)
  Sender: FDA-Public Use
  Company Number: None

PATIENT
  Age: 84 Year
  Sex: Female
  Weight: 47.6277 kg

DRUGS (1)
  1. ISOSORBIDE MONONITRATE [Suspect]
     Indication: LABILE BLOOD PRESSURE
     Dosage: 30 MG 1-AM
     Dates: start: 20080407, end: 20080501

REACTIONS (8)
  - ABDOMINAL DISCOMFORT [None]
  - CHEST PAIN [None]
  - DIZZINESS [None]
  - FALL [None]
  - HYPOTENSION [None]
  - MUSCULAR WEAKNESS [None]
  - NAUSEA [None]
  - RIB FRACTURE [None]
